FAERS Safety Report 7846455-1 (Version None)
Quarter: 2011Q4

REPORT INFORMATION
  Report Type: 
  Country: None (occurrence: None)
  Receive Date: 20111025
  Receipt Date: 20111025
  Transmission Date: 20120403
  Serious: Yes (Death)
  Sender: FDA-Public Use
  Company Number: None

PATIENT
  Age: 89 Year
  Sex: Female
  Weight: 68 kg

DRUGS (2)
  1. WARFARIN SODIUM [Concomitant]
     Dosage: 3 MG
     Route: 048
     Dates: start: 20110321, end: 20110822
  2. WARFARIN SODIUM [Suspect]
     Indication: ATRIAL FIBRILLATION
     Dosage: 2 MG
     Route: 048
     Dates: start: 20110321, end: 20110822

REACTIONS (5)
  - FALL [None]
  - SYNCOPE [None]
  - INTERNATIONAL NORMALISED RATIO INCREASED [None]
  - SUBARACHNOID HAEMORRHAGE [None]
  - SUBDURAL HAEMORRHAGE [None]
